FAERS Safety Report 6710267-2 (Version None)
Quarter: 2010Q2

REPORT INFORMATION
  Report Type: 
  Country: None (occurrence: None)
  Receive Date: 20100430
  Receipt Date: 20100421
  Transmission Date: 20101027
  Serious: Yes (Other)
  Sender: FDA-Public Use
  Company Number: SPV1-2010-00769

PATIENT
  Sex: Male

DRUGS (1)
  1. FOSRENOL [Suspect]
     Indication: HYPERPHOSPHATAEMIA
     Dosage: 750 MG TOTAL DAILY DOSE, ORAL
     Route: 048
     Dates: start: 20091124, end: 20100211

REACTIONS (2)
  - BILIARY CANCER METASTATIC [None]
  - HEPATIC FUNCTION ABNORMAL [None]
